FAERS Safety Report 19805148 (Version 1)
Quarter: 2021Q3

REPORT INFORMATION
  Report Type: Report from Study
  Country: IT (occurrence: IT)
  Receive Date: 20210908
  Receipt Date: 20210908
  Transmission Date: 20211014
  Serious: Yes (Hospitalization, Other)
  Sender: FDA-Public Use
  Company Number: IT-MYLANLABS-2021M1059162

PATIENT
  Age: 16 Year
  Sex: Female
  Weight: 70 kg

DRUGS (1)
  1. ARIPIPRAZOLE. [Suspect]
     Active Substance: ARIPIPRAZOLE
     Indication: PRODUCT USED FOR UNKNOWN INDICATION
     Dosage: 20 MILLIGRAM, TOTAL
     Route: 048
     Dates: start: 20210325, end: 20210325

REACTIONS (4)
  - Chest discomfort [Recovered/Resolved]
  - Suicidal ideation [Unknown]
  - Drug abuse [Unknown]
  - Intentional self-injury [Recovered/Resolved]

NARRATIVE: CASE EVENT DATE: 20210325
